FAERS Safety Report 14868849 (Version 2)
Quarter: 2018Q2

REPORT INFORMATION
  Report Type: Spontaneous
  Country: ES (occurrence: ES)
  Receive Date: 20180509
  Receipt Date: 20180525
  Transmission Date: 20180711
  Serious: Yes (Other)
  Sender: FDA-Public Use
  Company Number: ES-AUROBINDO-AUR-APL-2017-39925

PATIENT
  Age: 78 Year
  Sex: Female

DRUGS (28)
  1. APIXABAN [Concomitant]
     Active Substance: APIXABAN
     Indication: ATRIAL FIBRILLATION
     Dosage: 5 MILLIGRAM
     Route: 048
     Dates: start: 201505
  2. ENALAPRIL [Concomitant]
     Active Substance: ENALAPRIL
     Indication: HYPERTENSION
     Dosage: 20 MILLIGRAM
     Route: 048
     Dates: start: 201505
  3. METFORMIN [Concomitant]
     Active Substance: METFORMIN HYDROCHLORIDE
     Indication: TYPE 2 DIABETES MELLITUS
     Dosage: 850 MILLIGRAM
     Route: 048
     Dates: start: 201505
  4. METFORMIN [Concomitant]
     Active Substance: METFORMIN HYDROCHLORIDE
     Route: 048
  5. ALPRAZOLAM. [Suspect]
     Active Substance: ALPRAZOLAM
     Indication: INSOMNIA
  6. AMITRIPTYLINE [Suspect]
     Active Substance: AMITRIPTYLINE
     Indication: NEURALGIA
     Dosage: 25 MG, UNK
     Route: 065
  7. OMEPRAZOLE. [Concomitant]
     Active Substance: OMEPRAZOLE
     Indication: PRODUCT USED FOR UNKNOWN INDICATION
     Dosage: 20 MG, UNK
     Route: 048
  8. THIAMAZOLE [Concomitant]
     Active Substance: METHIMAZOLE
     Indication: BASEDOW^S DISEASE
     Dosage: 10 MILLIGRAM
     Route: 048
     Dates: start: 201505
  9. METOPROLOL. [Concomitant]
     Active Substance: METOPROLOL
     Indication: PRODUCT USED FOR UNKNOWN INDICATION
     Dosage: 15 MG, UNK
     Route: 065
  10. TRAMADOL. [Concomitant]
     Active Substance: TRAMADOL
     Indication: NEURALGIA
     Dosage: UNK
     Route: 042
  11. KETOROLAC [Concomitant]
     Active Substance: KETOROLAC\KETOROLAC TROMETHAMINE
     Dosage: ()
  12. ALPRAZOLAM. [Suspect]
     Active Substance: ALPRAZOLAM
     Indication: PRODUCT USED FOR UNKNOWN INDICATION
     Dosage: 0.5 MG, UNK
     Route: 048
  13. TRAMADOL. [Concomitant]
     Active Substance: TRAMADOL
     Indication: NEURALGIA
     Dosage: 100 MG, UNK
     Route: 065
  14. KETOROLAC [Concomitant]
     Active Substance: KETOROLAC\KETOROLAC TROMETHAMINE
     Indication: NEURALGIA
     Dosage: 50 MILLIGRAM
     Route: 042
  15. ENALAPRIL [Concomitant]
     Active Substance: ENALAPRIL
     Indication: PRODUCT USED FOR UNKNOWN INDICATION
     Dosage: 20 MG, UNK
     Route: 065
  16. ATORVASTATIN [Concomitant]
     Active Substance: ATORVASTATIN
     Indication: PRODUCT USED FOR UNKNOWN INDICATION
     Dosage: 40 MG, UNK
     Route: 065
  17. AMITRIPTYLINE [Suspect]
     Active Substance: AMITRIPTYLINE
     Indication: NEURALGIA
  18. OMEPRAZOLE. [Concomitant]
     Active Substance: OMEPRAZOLE
     Indication: DYSPEPSIA
  19. METOPROLOL. [Concomitant]
     Active Substance: METOPROLOL
     Indication: CARDIAC DISORDER
     Dosage: 25 MILLIGRAM
     Route: 048
     Dates: start: 201505
  20. PETHIDINE [Suspect]
     Active Substance: MEPERIDINE
     Indication: NEURALGIA
     Dosage: UNK
     Route: 065
  21. PETHIDINE [Suspect]
     Active Substance: MEPERIDINE
     Indication: NEURALGIA
  22. THIAMAZOLE [Concomitant]
     Active Substance: METHIMAZOLE
     Indication: PRODUCT USED FOR UNKNOWN INDICATION
     Dosage: 10 MG, UNK
     Route: 048
  23. ATORVASTATIN [Concomitant]
     Active Substance: ATORVASTATIN
     Indication: HYPERCHOLESTEROLAEMIA
     Dosage: 40 MILLIGRAM
     Route: 048
     Dates: start: 200901
  24. KETOROLAC [Concomitant]
     Active Substance: KETOROLAC\KETOROLAC TROMETHAMINE
     Route: 042
  25. LEVOFLOXACIN. [Concomitant]
     Active Substance: LEVOFLOXACIN
     Indication: PNEUMONIA
     Route: 065
  26. OMEPRAZOLE. [Suspect]
     Active Substance: OMEPRAZOLE
     Indication: PRODUCT USED FOR UNKNOWN INDICATION
     Route: 065
  27. APIXABAN [Concomitant]
     Active Substance: APIXABAN
     Indication: PRODUCT USED FOR UNKNOWN INDICATION
     Dosage: 5 MG, UNK
     Route: 065
  28. KETOROLAC [Concomitant]
     Active Substance: KETOROLAC\KETOROLAC TROMETHAMINE
     Indication: NEURALGIA
     Route: 065

REACTIONS (6)
  - Agitation [Recovering/Resolving]
  - Altered state of consciousness [Recovering/Resolving]
  - Withdrawal syndrome [Recovering/Resolving]
  - Confusional state [Recovering/Resolving]
  - Medication error [Unknown]
  - Hallucination, visual [Recovering/Resolving]
